FAERS Safety Report 23448959 (Version 1)
Quarter: 2024Q1

REPORT INFORMATION
  Report Type: Spontaneous
  Country: CN (occurrence: CN)
  Receive Date: 20240128
  Receipt Date: 20240128
  Transmission Date: 20240409
  Serious: Yes (Death, Other)
  Sender: FDA-Public Use
  Company Number: CN-SANDOZ-SDZ2024CN008224

PATIENT
  Sex: Male

DRUGS (1)
  1. ACLASTA [Suspect]
     Active Substance: ZOLEDRONIC ACID
     Indication: Product used for unknown indication
     Dosage: UNK UNK, Q12MO
     Route: 065

REACTIONS (1)
  - Death [Fatal]
